FAERS Safety Report 22368188 (Version 1)
Quarter: 2023Q2

REPORT INFORMATION
  Report Type: Spontaneous
  Country: US (occurrence: US)
  Receive Date: 20230525
  Receipt Date: 20230525
  Transmission Date: 20230721
  Serious: No
  Sender: FDA-Public Use
  Company Number: US-MYLANLABS-2023M1049966

PATIENT
  Age: 64 Year
  Sex: Female
  Weight: 63.96 kg

DRUGS (1)
  1. CYCLOSPORINE [Suspect]
     Active Substance: CYCLOSPORINE
     Indication: Dry eye
     Dosage: 0.05 PERCENT, BID (ONE ON MORNING AND ONE AT NIGHT)
     Route: 047
     Dates: start: 20230324, end: 20230503

REACTIONS (2)
  - Eye swelling [Recovered/Resolved]
  - Eye pruritus [Recovered/Resolved]

NARRATIVE: CASE EVENT DATE: 20230324
